FAERS Safety Report 25324842 (Version 1)
Quarter: 2025Q2

REPORT INFORMATION
  Report Type: Spontaneous
  Country: GB (occurrence: GB)
  Receive Date: 20250516
  Receipt Date: 20250516
  Transmission Date: 20250716
  Serious: Yes (Hospitalization)
  Sender: VERTEX
  Company Number: GB-VERTEX PHARMACEUTICALS-2021-013251

PATIENT
  Sex: Female

DRUGS (1)
  1. ELEXACAFTOR\IVACAFTOR\TEZACAFTOR [Suspect]
     Active Substance: ELEXACAFTOR\IVACAFTOR\TEZACAFTOR
     Indication: Cystic fibrosis
     Route: 048

REACTIONS (17)
  - Oropharyngeal pain [Unknown]
  - Dysphonia [Unknown]
  - Sputum retention [Unknown]
  - Suffocation feeling [Unknown]
  - Infection [Unknown]
  - Sinusitis [Recovered/Resolved]
  - Insomnia [Unknown]
  - Panic reaction [Unknown]
  - Frustration tolerance decreased [Unknown]
  - Gastrointestinal disorder [Unknown]
  - Anxiety [Unknown]
  - Flat affect [Unknown]
  - Amnesia [Unknown]
  - Cognitive disorder [Unknown]
  - Cough [Unknown]
  - Pruritus [Unknown]
  - Rash [Unknown]

NARRATIVE: CASE EVENT DATE: 20200101
